FAERS Safety Report 10363200 (Version 2)
Quarter: 2014Q3

REPORT INFORMATION
  Report Type: Spontaneous
  Country: US (occurrence: US)
  Receive Date: 20140805
  Receipt Date: 20140808
  Transmission Date: 20150326
  Serious: No
  Sender: FDA-Public Use
  Company Number: US-TEVA-498583USA

PATIENT
  Sex: Female

DRUGS (2)
  1. PROAIR HFA [Suspect]
     Active Substance: ALBUTEROL SULFATE
     Indication: BRONCHOSPASM
     Route: 065
     Dates: start: 20140626
  2. CLEOCIN [Concomitant]
     Active Substance: CLINDAMYCIN PHOSPHATE
     Indication: RHEUMATOID ARTHRITIS
     Dosage: TAKEN MONDAY, WEDNESDAY, AND FRIDAY
     Route: 048

REACTIONS (5)
  - Blood thyroid stimulating hormone decreased [Unknown]
  - Drug ineffective [Not Recovered/Not Resolved]
  - Expired product administered [Recovered/Resolved]
  - Cough [Unknown]
  - Sputum abnormal [Unknown]
